FAERS Safety Report 5341972-0 (Version None)
Quarter: 2007Q2

REPORT INFORMATION
  Report Type: 
  Country: None (occurrence: None)
  Receive Date: 20070530
  Receipt Date: 20070530
  Transmission Date: 20071010
  Serious: Yes (Life-Threatening, Hospitalization)
  Sender: FDA-Public Use
  Company Number: None

PATIENT
  Age: 64 Year
  Sex: Male
  Weight: 71.2 kg

DRUGS (3)
  1. ACEON [Suspect]
     Indication: HYPERTENSION
     Dosage: 8 MG ORALLY DAILY
     Route: 048
  2. GLUCOPHAGE [Suspect]
     Indication: DIABETES MELLITUS
     Dosage: 500 MG ORALLY DAILY
     Route: 048
  3. CRESTOR [Suspect]
     Indication: HYPERLIPIDAEMIA

REACTIONS (5)
  - HAEMODIALYSIS [None]
  - HYPERKALAEMIA [None]
  - METABOLIC ACIDOSIS [None]
  - RENAL FAILURE ACUTE [None]
  - RHABDOMYOLYSIS [None]
